FAERS Safety Report 7952800-9 (Version None)
Quarter: 2011Q4

REPORT INFORMATION
  Report Type: 
  Country: None (occurrence: None)
  Receive Date: 20111201
  Receipt Date: 20111121
  Transmission Date: 20120403
  Serious: Yes (Other)
  Sender: FDA-Public Use
  Company Number: BR-ABBOTT-11P-020-0876768-00

PATIENT
  Sex: Female
  Weight: 70 kg

DRUGS (3)
  1. CORTISONE ACETATE [Concomitant]
     Indication: RHEUMATOID ARTHRITIS
     Route: 048
     Dates: start: 20040101
  2. HUMIRA [Suspect]
     Indication: RHEUMATOID ARTHRITIS
     Dates: start: 20090101, end: 20111019
  3. MELOXICAM [Concomitant]
     Indication: RHEUMATOID ARTHRITIS
     Route: 048
     Dates: start: 20040101

REACTIONS (5)
  - OSTEOARTHRITIS [None]
  - HIP ARTHROPLASTY [None]
  - DEVICE DISLOCATION [None]
  - HYPERTENSION [None]
  - KNEE ARTHROPLASTY [None]
